FAERS Safety Report 15506723 (Version 1)
Quarter: 2018Q4

REPORT INFORMATION
  Report Type: Spontaneous
  Country: ES (occurrence: ES)
  Receive Date: 20181016
  Receipt Date: 20181016
  Transmission Date: 20190205
  Serious: Yes (Hospitalization, Other)
  Sender: FDA-Public Use
  Company Number: ES-PFIZER INC-2018414843

PATIENT
  Age: 57 Year
  Sex: Male

DRUGS (3)
  1. VIVACE [DELAPRIL HYDROCHLORIDE;MANIDIPINE HYDROCHLORIDE] [Suspect]
     Active Substance: DELAPRIL HYDROCHLORIDE\MANIDIPINE HYDROCHLORIDE
     Indication: HYPERTENSION
     Dosage: UNK, 1X/DAY ((30 + 10 MG, TABLET, PO) AT A DOSE OF 1 OR 2 TABLETS DAILY)
     Route: 048
     Dates: end: 2018
  2. ENALAPRIL [Suspect]
     Active Substance: ENALAPRIL
     Indication: HYPERTENSION
     Dosage: UNK
     Dates: start: 2018
  3. AMLODIPINE BESILATE [Suspect]
     Active Substance: AMLODIPINE BESYLATE
     Indication: HYPERTENSION
     Dosage: UNK
     Dates: start: 2018

REACTIONS (4)
  - Pneumonia [Unknown]
  - Ageusia [Unknown]
  - Anosmia [Unknown]
  - Back pain [Unknown]

NARRATIVE: CASE EVENT DATE: 2018
